FAERS Safety Report 7193004-X (Version None)
Quarter: 2010Q4

REPORT INFORMATION
  Report Type: 
  Country: None (occurrence: None)
  Receive Date: 20101213
  Receipt Date: 20101213
  Transmission Date: 20110411
  Serious: Yes (Other)
  Sender: FDA-Public Use
  Company Number: 1022556-2010-00083

PATIENT
  Age: 33 Year
  Sex: Female

DRUGS (1)
  1. ICY HOT POWER GEL 1.75 OZ [Suspect]
     Indication: MYALGIA
     Dosage: TOPICAL
     Route: 061

REACTIONS (2)
  - APPLICATION SITE PAIN [None]
  - APPLICATION SITE VESICLES [None]
